FAERS Safety Report 10717302 (Version 1)
Quarter: 2015Q1

REPORT INFORMATION
  Report Type: Spontaneous
  Country: CN (occurrence: CN)
  Receive Date: 20150116
  Receipt Date: 20150116
  Transmission Date: 20150721
  Serious: Yes (Hospitalization, Other)
  Sender: FDA-Public Use
  Company Number: CN-PFIZER INC-2015014567

PATIENT
  Age: 75 Year
  Sex: Female

DRUGS (2)
  1. TRIMETAZIDINE HYDROCHLORIDE [Concomitant]
     Active Substance: TRIMETAZIDINE DIHYDROCHLORIDE
     Indication: CARDIAC DISORDER
     Dosage: UNK
  2. NORVASC [Suspect]
     Active Substance: AMLODIPINE BESYLATE
     Indication: HYPERTENSION
     Dosage: 5 MG, UNK
     Route: 048
     Dates: start: 19940621, end: 20140522

REACTIONS (4)
  - Lacunar infarction [Unknown]
  - Cerebral haemorrhage [Recovering/Resolving]
  - Blood pressure inadequately controlled [Unknown]
  - Drug administration error [Recovering/Resolving]

NARRATIVE: CASE EVENT DATE: 201405
